FAERS Safety Report 26102190 (Version 1)
Quarter: 2025Q4

REPORT INFORMATION
  Report Type: Spontaneous
  Country: US (occurrence: US)
  Receive Date: 20251128
  Receipt Date: 20251128
  Transmission Date: 20260118
  Serious: Yes (Other)
  Sender: PURDUE
  Company Number: US-PURDUE-USA-2025-0322497

PATIENT
  Age: 72 Year
  Sex: Male

DRUGS (1)
  1. SCOPOLAMINE [Suspect]
     Active Substance: SCOPOLAMINE
     Indication: Motion sickness
     Dosage: UNK
     Route: 062

REACTIONS (3)
  - Tardive dyskinesia [Recovering/Resolving]
  - Tic [Unknown]
  - Parkinsonism [Recovering/Resolving]
